FAERS Safety Report 4358304-7 (Version None)
Quarter: 2004Q2

REPORT INFORMATION
  Report Type: 
  Country: None (occurrence: None)
  Receive Date: 20040514
  Receipt Date: 20040503
  Transmission Date: 20050107
  Serious: Yes (Disabling)
  Sender: FDA-Public Use
  Company Number: US-MERCK-0405USA00135

PATIENT
  Age: 69 Year
  Sex: Female

DRUGS (6)
  1. [THERAPY UNSPECIFIED] [Concomitant]
     Route: 065
  2. GLUCOTROL [Concomitant]
     Route: 065
  3. PREVACID [Concomitant]
     Route: 065
  4. ZOCOR [Suspect]
     Indication: BLOOD CHOLESTEROL INCREASED
     Route: 048
     Dates: start: 20030801, end: 20040201
  5. ZOCOR [Suspect]
     Route: 048
  6. AMBIEN [Concomitant]
     Route: 065

REACTIONS (5)
  - ALOPECIA [None]
  - BLOOD GLUCOSE INCREASED [None]
  - BURNING SENSATION [None]
  - HEADACHE [None]
  - PARAESTHESIA [None]
